FAERS Safety Report 8415866-8 (Version None)
Quarter: 2012Q2

REPORT INFORMATION
  Report Type: 
  Country: None (occurrence: None)
  Receive Date: 20120606
  Receipt Date: 20120523
  Transmission Date: 20120825
  Serious: No
  Sender: FDA-Public Use
  Company Number: US-ASTRAZENECA-2012SE33189

PATIENT
  Age: 54 Year
  Sex: Male
  Weight: 87.1 kg

DRUGS (7)
  1. LITHIUM CARBONATE [Concomitant]
     Indication: BIPOLAR DISORDER
  2. WARFARIN SODIUM [Concomitant]
     Indication: BLOOD CHOLESTEROL
  3. SIMVASTATIN [Concomitant]
     Indication: CARDIAC OPERATION
  4. ASPIRIN [Concomitant]
     Indication: CARDIAC DISORDER
  5. WARFARIN SODIUM [Concomitant]
     Indication: FAT TISSUE INCREASED
  6. SEROQUEL XR [Suspect]
     Indication: SLEEP DISORDER
     Route: 048
     Dates: start: 20050101
  7. SIMVASTATIN [Concomitant]
     Indication: ANTICOAGULANT THERAPY

REACTIONS (2)
  - INSOMNIA [None]
  - DRUG DOSE OMISSION [None]
